FAERS Safety Report 7446093-9 (Version None)
Quarter: 2011Q2

REPORT INFORMATION
  Report Type: 
  Country: None (occurrence: None)
  Receive Date: 20110429
  Receipt Date: 20110420
  Transmission Date: 20111010
  Serious: Yes (Other)
  Sender: FDA-Public Use
  Company Number: A0693973C

PATIENT
  Sex: Male
  Weight: 80 kg

DRUGS (3)
  1. LAPATINIB [Suspect]
     Dosage: 1500MG PER DAY
     Route: 048
     Dates: start: 20071030
  2. CISPLATIN [Suspect]
     Dosage: 100MGM2 CYCLIC
     Route: 042
     Dates: start: 20071106
  3. RADIOTHERAPY [Concomitant]
     Dosage: 4GY VARIABLE DOSE
     Route: 061
     Dates: start: 20071106

REACTIONS (1)
  - HYPONATRAEMIA [None]
